FAERS Safety Report 21191924 (Version 1)
Quarter: 2022Q3

REPORT INFORMATION
  Report Type: Report from Study
  Country: US (occurrence: US)
  Receive Date: 20220809
  Receipt Date: 20220809
  Transmission Date: 20221027
  Serious: Yes (Other)
  Sender: FDA-Public Use
  Company Number: US-BRISTOL-MYERS SQUIBB COMPANY-2022-053772

PATIENT
  Age: 67 Year
  Sex: Female
  Weight: 68.49 kg

DRUGS (3)
  1. REVLIMID [Suspect]
     Active Substance: LENALIDOMIDE
     Indication: Plasma cell myeloma
     Route: 048
     Dates: start: 20170421
  2. REVLIMID [Suspect]
     Active Substance: LENALIDOMIDE
     Dosage: DAILY FOR 28 DAYS
     Route: 048
     Dates: start: 20170421
  3. ASPIRIN [Concomitant]
     Active Substance: ASPIRIN

REACTIONS (3)
  - Tongue disorder [Unknown]
  - Sleep disorder [Unknown]
  - Polyp [Unknown]
